FAERS Safety Report 24346928 (Version 2)
Quarter: 2024Q3

REPORT INFORMATION
  Report Type: Spontaneous
  Country: US (occurrence: US)
  Receive Date: 20240921
  Receipt Date: 20240926
  Transmission Date: 20241017
  Serious: Yes (Other)
  Sender: REGENERON
  Company Number: US-REGENERON PHARMACEUTICALS, INC.-2024-125808

PATIENT
  Age: 53 Year
  Sex: Male

DRUGS (8)
  1. EYLEA [Suspect]
     Active Substance: AFLIBERCEPT
     Indication: Diabetic retinopathy
     Dosage: 2 MG EVERY 4-6 WEEKS INTO RIGHT EYE (FORMULATION: UNKNOWN)
     Route: 031
  2. EYLEA [Suspect]
     Active Substance: AFLIBERCEPT
     Indication: Diabetic retinal oedema
     Dosage: 2 MG INTO RIGHT EYE (FORMULATION: UNKNOWN)
     Route: 031
     Dates: start: 20220901, end: 20220901
  3. EYLEA [Suspect]
     Active Substance: AFLIBERCEPT
     Dosage: 2 MG, MONTHLY INTO RIGHT EYE (FORMULATION: UNKNOWN)
     Route: 031
     Dates: start: 20221222, end: 20221222
  4. EYLEA [Suspect]
     Active Substance: AFLIBERCEPT
     Dosage: 2 MG INTO RIGHT EYE (FORMULATION: UNKNOWN)
     Route: 031
     Dates: start: 2023, end: 2023
  5. EYLEA [Suspect]
     Active Substance: AFLIBERCEPT
     Dosage: 2 MG INTO RIGHT EYE (FORMULATION: UNKNOWN)
     Route: 031
     Dates: start: 2023, end: 2023
  6. EYLEA [Suspect]
     Active Substance: AFLIBERCEPT
     Dosage: 2 MG INTO RIGHT EYE (FORMULATION: UNKNOWN)
     Route: 031
     Dates: start: 20231020, end: 20231020
  7. EYLEA [Suspect]
     Active Substance: AFLIBERCEPT
     Dosage: 2 MG, 7 WEEKS INTO RIGHT EYE (FORMULATION: UNKNOWN)
     Route: 031
     Dates: start: 20231215, end: 20231215
  8. EYLEA [Suspect]
     Active Substance: AFLIBERCEPT
     Dosage: 2 MG INTO RIGHT EYE (FORMULATION: UNKNOWN)
     Route: 031
     Dates: start: 20240209, end: 20240209

REACTIONS (2)
  - Vitreous haemorrhage [Unknown]
  - Diabetic retinal oedema [Unknown]

NARRATIVE: CASE EVENT DATE: 20230501
